FAERS Safety Report 15448367 (Version 1)
Quarter: 2018Q3

REPORT INFORMATION
  Report Type: Spontaneous
  Country: US (occurrence: US)
  Receive Date: 20180926
  Receipt Date: 20180926
  Transmission Date: 20181010
  Serious: Yes (Life-Threatening, Disabling, Other)
  Sender: FDA-Public Use
  Company Number: None

PATIENT
  Age: 49 Year
  Sex: Female
  Weight: 48.6 kg

DRUGS (2)
  1. ENTYVIO [Suspect]
     Active Substance: VEDOLIZUMAB
     Indication: COLITIS ULCERATIVE
     Dosage: ?          QUANTITY:1 INFUSION BAG;OTHER FREQUENCY:EVERY 8 WEEKS;?
     Route: 042
     Dates: start: 20171214, end: 20180906
  2. ENTYVIO [Suspect]
     Active Substance: VEDOLIZUMAB
     Indication: CROHN^S DISEASE
     Dosage: ?          QUANTITY:1 INFUSION BAG;OTHER FREQUENCY:EVERY 8 WEEKS;?
     Route: 042
     Dates: start: 20171214, end: 20180906

REACTIONS (12)
  - Peripheral swelling [None]
  - Heart rate increased [None]
  - Skin burning sensation [None]
  - Anaphylactic shock [None]
  - Oropharyngeal pain [None]
  - Head discomfort [None]
  - Paranasal sinus discomfort [None]
  - Pharyngeal oedema [None]
  - Tremor [None]
  - Pyrexia [None]
  - Palpitations [None]
  - Blood pressure increased [None]

NARRATIVE: CASE EVENT DATE: 20180906
